FAERS Safety Report 8808556 (Version 1)
Quarter: 2012Q4

REPORT INFORMATION
  Report Type: 
  Country: US (occurrence: US)
  Receive Date: 20120926
  Receipt Date: 20120926
  Transmission Date: 20130627
  Serious: Yes (Other)
  Sender: FDA-Public Use
  Company Number: PHEH2012US017143

PATIENT
  Age: 75 Year
  Sex: Female

DRUGS (1)
  1. EXELON PATCH [Suspect]
     Dosage: 4.6 mg daily
     Route: 062

REACTIONS (5)
  - Dementia with Lewy bodies [Unknown]
  - Diarrhoea [Recovering/Resolving]
  - Vomiting [Recovering/Resolving]
  - Nausea [Recovering/Resolving]
  - Asthenia [None]
